FAERS Safety Report 12342748 (Version 3)
Quarter: 2016Q2

REPORT INFORMATION
  Report Type: Spontaneous
  Country: JP (occurrence: JP)
  Receive Date: 20160506
  Receipt Date: 20160616
  Transmission Date: 20160815
  Serious: Yes (Hospitalization, Other)
  Sender: FDA-Public Use
  Company Number: JP-VALIDUS PHARMACEUTICALS LLC-JP-2016VAL001464

PATIENT
  Age: 40 Year
  Sex: Female

DRUGS (3)
  1. LOPRESSOR [Suspect]
     Active Substance: METOPROLOL TARTRATE
     Dosage: 80 MG, UNK
     Route: 048
  2. ATORVASTATIN [Concomitant]
     Active Substance: ATORVASTATIN
     Indication: PRODUCT USED FOR UNKNOWN INDICATION
     Dosage: UNK
  3. LOPRESSOR [Suspect]
     Active Substance: METOPROLOL TARTRATE
     Indication: ARRHYTHMIA
     Dosage: 40 MG, QD
     Route: 048

REACTIONS (7)
  - Atrial fibrillation [Unknown]
  - Syncope [Unknown]
  - Sinus node dysfunction [Unknown]
  - Palpitations [Unknown]
  - Atrial tachycardia [Unknown]
  - Supraventricular tachycardia [Unknown]
  - Sinus arrest [Unknown]
